FAERS Safety Report 18271656 (Version 2)
Quarter: 2020Q4

REPORT INFORMATION
  Report Type: Report from Study
  Country: AR (occurrence: AR)
  Receive Date: 20200916
  Receipt Date: 20201002
  Transmission Date: 20210113
  Serious: Yes (Other)
  Sender: FDA-Public Use
  Company Number: NVSC2020AR251217

PATIENT
  Age: 76 Year
  Sex: Male

DRUGS (2)
  1. DIOVAN [Suspect]
     Active Substance: VALSARTAN
     Indication: HYPERTENSION
     Dosage: UNK (STOPED 2 YEARS AGO)
     Route: 065
     Dates: start: 2010
  2. DIOVAN [Suspect]
     Active Substance: VALSARTAN
     Dosage: UNK
     Route: 065

REACTIONS (7)
  - Blood pressure systolic increased [Unknown]
  - Decreased appetite [Unknown]
  - Blood pressure increased [Unknown]
  - Blood pressure decreased [Unknown]
  - Nervousness [Unknown]
  - Thrombosis [Unknown]
  - Discomfort [Unknown]

NARRATIVE: CASE EVENT DATE: 20200909
